FAERS Safety Report 10211076 (Version 1)
Quarter: 2014Q2

REPORT INFORMATION
  Report Type: Spontaneous
  Country: US (occurrence: US)
  Receive Date: 20140602
  Receipt Date: 20140602
  Transmission Date: 20141212
  Serious: Yes (Other)
  Sender: FDA-Public Use
  Company Number: US-PFIZER INC-2014146703

PATIENT
  Age: 85 Year
  Sex: Female
  Weight: 70.3 kg

DRUGS (5)
  1. LIPITOR [Suspect]
     Indication: BLOOD CHOLESTEROL INCREASED
     Dosage: 10 MG, 1X/DAY (AT NIGHT)
     Dates: start: 2006
  2. ACCUPRIL [Suspect]
     Dosage: 40 MG, 1X/DAY (IN THE MORNING)
     Dates: start: 2006
  3. SYNTHROID [Concomitant]
     Indication: THYROID DISORDER
     Dosage: 50 UG, DAILY
  4. ASPIRIN [Concomitant]
     Dosage: 81 MG, DAILY
  5. DEMADEX [Concomitant]
     Indication: DIURETIC THERAPY
     Dosage: 10 MG, 1X/DAY

REACTIONS (2)
  - Deafness [Unknown]
  - Gout [Unknown]
